FAERS Safety Report 9254254 (Version 2)
Quarter: 2013Q2

REPORT INFORMATION
  Report Type: Report from Study
  Country: US (occurrence: US)
  Receive Date: 20130425
  Receipt Date: 20130510
  Transmission Date: 20140414
  Serious: Yes (Hospitalization)
  Sender: FDA-Public Use
  Company Number: PHEH2013US009106

PATIENT
  Sex: Male
  Weight: 96 kg

DRUGS (2)
  1. GLEEVEC [Suspect]
     Indication: GASTROINTESTINAL STROMAL TUMOUR
     Dosage: 400 MG,
     Route: 048
     Dates: start: 20120830
  2. GLEEVEC [Suspect]
     Dosage: 800 MG
     Route: 048
     Dates: start: 20130103

REACTIONS (3)
  - Hernia [Unknown]
  - Intestinal obstruction [Unknown]
  - Fluid retention [Unknown]
